FAERS Safety Report 20584116 (Version 1)
Quarter: 2022Q1

REPORT INFORMATION
  Report Type: Spontaneous
  Country: US (occurrence: US)
  Receive Date: 20220311
  Receipt Date: 20220311
  Transmission Date: 20220423
  Serious: Yes (Other)
  Sender: FDA-Public Use
  Company Number: US-SLATE RUN PHARMACEUTICALS-22US000965

PATIENT

DRUGS (5)
  1. VANCOMYCIN HYDROCHLORIDE [Interacting]
     Active Substance: VANCOMYCIN HYDROCHLORIDE
     Indication: Medical device site joint infection
     Dosage: UNK
     Route: 042
  2. TOBRAMYCIN [Interacting]
     Active Substance: TOBRAMYCIN
     Indication: Medical device site joint infection
     Dosage: 14.4 GRAM
  3. CEFEPIME [Concomitant]
     Active Substance: CEFEPIME HYDROCHLORIDE
     Indication: Medical device site joint infection
  4. GENTAMICIN [Concomitant]
     Active Substance: GENTAMICIN
     Indication: Medical device site joint infection
     Dosage: 1.5 GRAM
  5. UNSPECIFIED INGREDIENT [Concomitant]
     Active Substance: UNSPECIFIED INGREDIENT
     Indication: Orthopaedic procedure

REACTIONS (6)
  - Drug level increased [Recovered/Resolved]
  - Procedural failure [Recovering/Resolving]
  - Potentiating drug interaction [Recovered/Resolved]
  - Procedural haemorrhage [Unknown]
  - Hypotension [Unknown]
  - Acute kidney injury [Recovered/Resolved]
